FAERS Safety Report 9787550 (Version 2)
Quarter: 2014Q1

REPORT INFORMATION
  Report Type: Spontaneous
  Country: IT (occurrence: IT)
  Receive Date: 20131230
  Receipt Date: 20140214
  Transmission Date: 20141002
  Serious: Yes (Hospitalization)
  Sender: FDA-Public Use
  Company Number: IT-ACCORD-020974

PATIENT
  Age: 75 Year
  Sex: Female

DRUGS (5)
  1. NIFEDIPINE [Concomitant]
  2. LEVOTHYROXINE [Concomitant]
  3. OLMESARTAN [Concomitant]
  4. PACLITAXEL/PACLITAXEL LIPOSOME [Suspect]
     Indication: BREAST CANCER
     Route: 042
     Dates: start: 20130920, end: 20131021
  5. TICLOPIDINE [Concomitant]

REACTIONS (2)
  - Tachyarrhythmia [Recovered/Resolved]
  - Myocardial ischaemia [Recovered/Resolved]
